FAERS Safety Report 8560162-1 (Version None)
Quarter: 2012Q3

REPORT INFORMATION
  Report Type: 
  Country: None (occurrence: None)
  Receive Date: 20120802
  Receipt Date: 20120725
  Transmission Date: 20120928
  Serious: Yes (Other)
  Sender: FDA-Public Use
  Company Number: FR-SANOFI-AVENTIS-2012SA052998

PATIENT
  Age: 50 Year
  Sex: Male
  Weight: 112 kg

DRUGS (1)
  1. ZOLPIDEM TARTRATE [Suspect]
     Route: 048
     Dates: start: 20090101

REACTIONS (5)
  - LIBIDO DECREASED [None]
  - SUICIDAL IDEATION [None]
  - WEIGHT INCREASED [None]
  - CONFUSIONAL STATE [None]
  - VERTIGO [None]
